FAERS Safety Report 16570742 (Version 1)
Quarter: 2019Q3

REPORT INFORMATION
  Report Type: Spontaneous
  Country: CA (occurrence: CA)
  Receive Date: 20190715
  Receipt Date: 20190715
  Transmission Date: 20191004
  Serious: Yes (Hospitalization, Other)
  Sender: FDA-Public Use
  Company Number: CA-PFIZER INC-2019298481

PATIENT
  Age: 84 Year
  Sex: Male

DRUGS (8)
  1. PANTOPRAZOLE [Suspect]
     Active Substance: PANTOPRAZOLE
     Dosage: 40 MILLIGRAM, BID
     Route: 048
  2. BISOPROLOL [Concomitant]
     Active Substance: BISOPROLOL
     Dosage: 5 MILLIGRAM, QD
     Route: 065
  3. SEEBRI BREEZHALER [Suspect]
     Active Substance: GLYCOPYRROLATE
     Dosage: ONE DOSAGE FORM, QD
     Route: 055
  4. CYANOCOBALAMIN. [Suspect]
     Active Substance: CYANOCOBALAMIN
     Dosage: UNK, MONTHLY
     Route: 065
  5. BISOPROLOL FUMARATE. [Concomitant]
     Active Substance: BISOPROLOL FUMARATE
     Dosage: 5 MILLIGRAM, QD
     Route: 065
  6. SANDOSTATIN [Suspect]
     Active Substance: OCTREOTIDE ACETATE
     Indication: GASTRECTOMY
     Dosage: 10 MILLIGRAM, MONTHLY
     Route: 030
  7. FINASTERIDE. [Suspect]
     Active Substance: FINASTERIDE
     Dosage: 5 MILLIGRAM, QD
     Route: 048
  8. DOMPERIDONE [Concomitant]
     Active Substance: DOMPERIDONE
     Dosage: UNK, TID
     Route: 048

REACTIONS (11)
  - Angina pectoris [Unknown]
  - Gastrooesophageal reflux disease [Unknown]
  - Cataract [Unknown]
  - Pneumonia [Unknown]
  - Saliva altered [Unknown]
  - Asthenia [Unknown]
  - Blood pressure systolic increased [Unknown]
  - Hypotension [Unknown]
  - Confusional state [Unknown]
  - Abdominal pain upper [Unknown]
  - Weight increased [Unknown]
